FAERS Safety Report 7885373-X (Version None)
Quarter: 2011Q4

REPORT INFORMATION
  Report Type: 
  Country: None (occurrence: None)
  Receive Date: 20111102
  Receipt Date: 20111031
  Transmission Date: 20120403
  Serious: Yes (Other)
  Sender: FDA-Public Use
  Company Number: US-PFIZER INC-2011266552

PATIENT
  Sex: Male
  Weight: 100 kg

DRUGS (3)
  1. VICODIN [Concomitant]
     Indication: PAIN
     Dosage: UNK
     Route: 048
  2. CHANTIX [Suspect]
     Indication: SMOKING CESSATION THERAPY
     Dosage: UNK
     Route: 048
     Dates: start: 20111001, end: 20111001
  3. CHANTIX [Suspect]
     Dosage: 1 MG, 2X/DAY
     Route: 048
     Dates: start: 20111001

REACTIONS (3)
  - HALLUCINATION [None]
  - AGGRESSION [None]
  - ABNORMAL DREAMS [None]
